FAERS Safety Report 5292873-8 (Version None)
Quarter: 2007Q2

REPORT INFORMATION
  Report Type: 
  Country: None (occurrence: None)
  Receive Date: 20070411
  Receipt Date: 20070409
  Transmission Date: 20071010
  Serious: Yes (Hospitalization)
  Sender: FDA-Public Use
  Company Number: US-RB-005818-07

PATIENT
  Sex: Female

DRUGS (4)
  1. SUBOXONE [Suspect]
     Route: 060
     Dates: start: 20061102, end: 20061227
  2. HEROIN [Concomitant]
  3. METHADONE HCL [Suspect]
     Dates: start: 20061228
  4. WELLBUTRIN [Concomitant]
     Dosage: USED FOR ONE YEAR - UNKNOWN DATES WITH INCREASED DOSE TO 450 MG/DAY

REACTIONS (2)
  - DEPRESSION [None]
  - SUICIDAL IDEATION [None]
